FAERS Safety Report 13068402 (Version 1)
Quarter: 2016Q4

REPORT INFORMATION
  Report Type: Spontaneous
  Country: US (occurrence: US)
  Receive Date: 20161228
  Receipt Date: 20161228
  Transmission Date: 20170207
  Serious: No
  Sender: FDA-Public Use
  Company Number: US-BAYER-2016-243202

PATIENT
  Age: 12 Month
  Sex: Female
  Weight: 10 kg

DRUGS (1)
  1. MIRALAX [Suspect]
     Active Substance: POLYETHYLENE GLYCOL 3350
     Indication: GASTROINTESTINAL DISORDER
     Dosage: 0.5 DF,EVERY 2 TO 3 DAYS
     Route: 048
     Dates: start: 201606

REACTIONS (4)
  - Inappropriate schedule of drug administration [Unknown]
  - Product use issue [Unknown]
  - Accidental exposure to product by child [Unknown]
  - Expired product administered [Unknown]

NARRATIVE: CASE EVENT DATE: 201606
